FAERS Safety Report 4589220-3 (Version None)
Quarter: 2005Q1

REPORT INFORMATION
  Report Type: 
  Country: None (occurrence: None)
  Receive Date: 20050217
  Receipt Date: 20050217
  Transmission Date: 20050727
  Serious: Yes (Other)
  Sender: FDA-Public Use
  Company Number: None

PATIENT
  Age: 15 Month
  Sex: Male
  Weight: 10.8863 kg

DRUGS (4)
  1. ELIDEL [Suspect]
     Indication: DERMATITIS ATOPIC
     Dosage: TWICE DAILY TOPICAL
     Route: 061
     Dates: start: 20040624, end: 20041224
  2. PROTOPIC [Suspect]
     Indication: DERMATITIS ATOPIC
     Dosage: TWICE DAILY TOPICAL
     Route: 061
     Dates: start: 20041225, end: 20050211
  3. GRIFULVIN V [Concomitant]
  4. OXISTAT [Concomitant]

REACTIONS (5)
  - EAR INFECTION [None]
  - IMMUNE SYSTEM DISORDER [None]
  - PYREXIA [None]
  - TINEA CAPITIS [None]
  - UPPER RESPIRATORY TRACT INFECTION [None]
